FAERS Safety Report 4913913-9 (Version None)
Quarter: 2006Q1

REPORT INFORMATION
  Report Type: 
  Country: None (occurrence: None)
  Receive Date: 20060216
  Receipt Date: 20051018
  Transmission Date: 20060701
  Serious: Yes (Other)
  Sender: FDA-Public Use
  Company Number: US-MERCK-0510USA07663

PATIENT
  Age: 80 Year
  Sex: Female
  Weight: 55 kg

DRUGS (7)
  1. VIOXX [Suspect]
     Indication: OSTEOARTHRITIS
     Route: 048
     Dates: start: 20020101, end: 20040901
  2. SYNTHROID [Concomitant]
     Indication: THYROID DISORDER
     Route: 065
  3. ELAVIL [Concomitant]
     Indication: MIGRAINE
     Route: 065
  4. NEURONTIN [Concomitant]
     Indication: MIGRAINE
     Route: 065
  5. CAFERGOT [Concomitant]
     Indication: MIGRAINE
     Route: 065
  6. PHENOBARBITAL [Concomitant]
     Indication: MIGRAINE
     Route: 065
  7. TYLENOL [Concomitant]
     Route: 065

REACTIONS (3)
  - ABDOMINAL PAIN UPPER [None]
  - CEREBROVASCULAR ACCIDENT [None]
  - PRESCRIBED OVERDOSE [None]
